FAERS Safety Report 4522303-2 (Version None)
Quarter: 2004Q4

REPORT INFORMATION
  Report Type: 
  Country: None (occurrence: None)
  Receive Date: 20041207
  Receipt Date: 20041118
  Transmission Date: 20050328
  Serious: Yes (Other)
  Sender: FDA-Public Use
  Company Number: JP_041105213

PATIENT
  Age: 36 Year
  Sex: Female
  Weight: 97 kg

DRUGS (1)
  1. HUMALOG [Suspect]
     Dosage: 19 U DAY

REACTIONS (2)
  - DRUG EXPOSURE DURING PREGNANCY [None]
  - PRE-ECLAMPSIA [None]
